FAERS Safety Report 20014037 (Version 1)
Quarter: 2021Q4

REPORT INFORMATION
  Report Type: Spontaneous
  Country: US (occurrence: US)
  Receive Date: 20211029
  Receipt Date: 20211029
  Transmission Date: 20220303
  Serious: Yes (Hospitalization, Other)
  Sender: FDA-Public Use
  Company Number: US-BRISTOL-MYERS SQUIBB COMPANY-BMS-2021-112698

PATIENT
  Age: 72 Year
  Sex: Female
  Weight: 47.17 kg

DRUGS (2)
  1. ELIQUIS [Suspect]
     Active Substance: APIXABAN
     Indication: Cerebrovascular accident prophylaxis
     Dosage: 5 MILLIGRAM, BID
     Route: 048
     Dates: start: 201711
  2. CARVEDILOL [Concomitant]
     Active Substance: CARVEDILOL
     Indication: Product used for unknown indication
     Dosage: UNK
     Route: 065
     Dates: start: 2019

REACTIONS (16)
  - Autoimmune thyroiditis [Unknown]
  - Aortic valve disease [Unknown]
  - Gait disturbance [Unknown]
  - Loss of consciousness [Unknown]
  - Weight decreased [Unknown]
  - Dizziness [Recovered/Resolved]
  - Vertigo [Unknown]
  - Vision blurred [Unknown]
  - Malaise [Unknown]
  - Asthenia [Unknown]
  - Blood cholesterol increased [Unknown]
  - Pruritus [Unknown]
  - Erythema [Unknown]
  - Increased tendency to bruise [Unknown]
  - Fatigue [Unknown]
  - Poor quality sleep [Unknown]

NARRATIVE: CASE EVENT DATE: 20190101
